FAERS Safety Report 6257960-6 (Version None)
Quarter: 2009Q3

REPORT INFORMATION
  Report Type: 
  Country: None (occurrence: None)
  Receive Date: 20090707
  Receipt Date: 20090701
  Transmission Date: 20100115
  Serious: Yes (Death, Hospitalization)
  Sender: FDA-Public Use
  Company Number: JP-ASTRAZENECA-2009SE03847

PATIENT
  Age: 79 Year
  Sex: Female

DRUGS (7)
  1. CRESTOR [Suspect]
     Indication: HYPERCHOLESTEROLAEMIA
     Route: 048
     Dates: end: 20090626
  2. ASPIRIN [Suspect]
     Dosage: DOSE UNKNOWN
     Route: 048
     Dates: end: 20090626
  3. AMLODIPINE [Suspect]
     Indication: HYPERTENSION
     Dosage: DOSE UNKNOWN
     Route: 048
     Dates: end: 20090626
  4. ACECOL [Suspect]
     Indication: HYPERTENSION
     Dosage: DOSE UNKNOWN
     Route: 048
     Dates: end: 20090626
  5. ALFAROL [Suspect]
     Dosage: DOSE UNKNOWN
     Route: 048
     Dates: end: 20090626
  6. ERISPAN [Suspect]
     Dosage: DOSE UNKNOWN
     Route: 048
     Dates: end: 20090626
  7. GASUISAN [Suspect]
     Dosage: DOSE UNKNOWN
     Route: 048
     Dates: end: 20090626

REACTIONS (1)
  - PANCREATITIS ACUTE [None]
